FAERS Safety Report 7437015-5 (Version None)
Quarter: 2011Q2

REPORT INFORMATION
  Report Type: 
  Country: None (occurrence: None)
  Receive Date: 20110426
  Receipt Date: 20110420
  Transmission Date: 20111010
  Serious: Yes (Death, Hospitalization, Other)
  Sender: FDA-Public Use
  Company Number: ES-MILLENNIUM PHARMACEUTICALS, INC.-2010-03484

PATIENT

DRUGS (17)
  1. ACYCLOVIR [Concomitant]
     Indication: PROPHYLAXIS
     Dosage: 800 MG, UNK
     Route: 048
  2. NEUPOGEN [Concomitant]
     Indication: NEUTROPENIA
     Dosage: 300 UG, UNK
     Dates: start: 20100616, end: 20100618
  3. DEXAMETHASONE [Suspect]
     Dosage: 20 MG, CYCLIC
     Route: 048
     Dates: start: 20100608, end: 20100629
  4. LEVOTHYROXINE                      /00068002/ [Concomitant]
     Indication: HYPOTHYROIDISM
     Dosage: 75 MG, UNK
     Route: 048
  5. PLASMA [Concomitant]
     Indication: COAGULOPATHY
     Dosage: UNK
     Dates: start: 20100615, end: 20100701
  6. CALCIUM GLUCONATE [Concomitant]
     Indication: HYPOCALCAEMIA
     Dosage: UNK
     Dates: start: 20100616, end: 20100618
  7. PRIMPERAN                          /00041901/ [Concomitant]
     Indication: NAUSEA
     Dosage: UNK
     Dates: start: 20100620, end: 20100701
  8. DEXAMETHASONE [Suspect]
     Indication: MULTIPLE MYELOMA
     Dosage: 40 MG, UNK
     Route: 048
     Dates: start: 20091112, end: 20100608
  9. DEXAMETHASONE [Suspect]
     Dosage: 20 MG/M2, UNK
     Dates: start: 20100628
  10. ALLOPURINOL [Concomitant]
     Indication: HYPERURICAEMIA
     Dosage: UNK
     Route: 048
     Dates: start: 20100608, end: 20100630
  11. CALCIUM SANDOZ FORTE D [Concomitant]
     Indication: HYPOCALCAEMIA
     Dosage: 1000 MG, UNK
     Route: 042
     Dates: start: 20100611, end: 20100615
  12. FORTASEC                           /00384301/ [Concomitant]
     Indication: DIARRHOEA
     Dosage: UNK
     Dates: start: 20100625, end: 20100701
  13. ADOLONTA [Concomitant]
     Indication: ANALGESIC THERAPY
     Dosage: 100 MG, UNK
     Route: 042
     Dates: start: 20100604, end: 20100630
  14. MEROPENEM [Concomitant]
     Indication: FEBRILE NEUTROPENIA
     Dosage: UNK
     Dates: start: 20100618, end: 20100701
  15. REVLIMID [Concomitant]
     Indication: MULTIPLE MYELOMA
     Dosage: 5 MG, CYCLIC
     Route: 048
     Dates: start: 20091112, end: 20100608
  16. VELCADE [Suspect]
     Indication: LEUKAEMIA PLASMACYTIC
     Dosage: 2 MG, CYCLIC
     Route: 042
     Dates: start: 20100608
  17. SEGURIL                            /00032601/ [Concomitant]
     Indication: PLEURAL DISORDER
     Dosage: 40 MG, UNK
     Route: 042
     Dates: start: 20100609, end: 20100701

REACTIONS (4)
  - ACUTE PULMONARY OEDEMA [None]
  - HAEMATOMA [None]
  - HYPERTENSIVE CRISIS [None]
  - FEBRILE NEUTROPENIA [None]
